FAERS Safety Report 17730796 (Version 1)
Quarter: 2020Q2

REPORT INFORMATION
  Report Type: Report from Study
  Country: US (occurrence: US)
  Receive Date: 20200430
  Receipt Date: 20200430
  Transmission Date: 20200714
  Serious: Yes (Other)
  Sender: FDA-Public Use
  Company Number: US-BAUSCH-BL-2019-007009

PATIENT
  Age: 56 Year
  Sex: Male

DRUGS (2)
  1. APRISO [Suspect]
     Active Substance: MESALAMINE
     Indication: PRODUCT USE IN UNAPPROVED INDICATION
  2. APRISO [Suspect]
     Active Substance: MESALAMINE
     Indication: CROHN^S DISEASE
     Route: 065

REACTIONS (4)
  - Product use in unapproved indication [Unknown]
  - Surgery [Unknown]
  - Inability to afford medication [Unknown]
  - Crohn^s disease [Unknown]
